FAERS Safety Report 21759811 (Version 1)
Quarter: 2022Q4

REPORT INFORMATION
  Report Type: Spontaneous
  Country: US (occurrence: None)
  Receive Date: 20221221
  Receipt Date: 20221221
  Transmission Date: 20230112
  Serious: No
  Sender: FDA-Public Use
  Company Number: 2022A399121

PATIENT
  Age: 26577 Day
  Sex: Female
  Weight: 65.8 kg

DRUGS (7)
  1. BYDUREON BCISE [Suspect]
     Active Substance: EXENATIDE
     Indication: Type 2 diabetes mellitus
     Route: 058
     Dates: start: 2020
  2. GLIMEPIRIDE [Concomitant]
     Active Substance: GLIMEPIRIDE
  3. LISINOPRIL [Concomitant]
     Active Substance: LISINOPRIL
  4. METFORMIN [Concomitant]
     Active Substance: METFORMIN HYDROCHLORIDE
  5. METOPROLOL [Concomitant]
     Active Substance: METOPROLOL
  6. VITAMIN B12 [Concomitant]
     Active Substance: CYANOCOBALAMIN
  7. ASPIRIN [Concomitant]
     Active Substance: ASPIRIN

REACTIONS (6)
  - Dementia Alzheimer^s type [Unknown]
  - Urinary tract infection [Unknown]
  - Injection site haemorrhage [Recovered/Resolved]
  - Device leakage [Unknown]
  - Incorrect dose administered by device [Unknown]
  - Drug ineffective [Unknown]

NARRATIVE: CASE EVENT DATE: 20221112
